FAERS Safety Report 7423111-5 (Version None)
Quarter: 2011Q2

REPORT INFORMATION
  Report Type: 
  Country: None (occurrence: None)
  Receive Date: 20110419
  Receipt Date: 20110411
  Transmission Date: 20111010
  Serious: Yes (Other)
  Sender: FDA-Public Use
  Company Number: US-JNJFOC-20101007847

PATIENT
  Sex: Male

DRUGS (3)
  1. STEROIDS NOS [Suspect]
     Indication: PRODUCT USED FOR UNKNOWN INDICATION
     Route: 065
  2. LEVAQUIN [Suspect]
     Indication: LOCALISED INFECTION
     Route: 048
  3. LEVAQUIN [Suspect]
     Indication: POST PROCEDURAL INFECTION
     Route: 048

REACTIONS (5)
  - MUSCLE INJURY [None]
  - ANXIETY [None]
  - DEPRESSION [None]
  - TENDONITIS [None]
  - SKIN ULCER [None]
